FAERS Safety Report 20707767 (Version 3)
Quarter: 2022Q2

REPORT INFORMATION
  Report Type: Spontaneous
  Country: DE (occurrence: DE)
  Receive Date: 20220413
  Receipt Date: 20220612
  Transmission Date: 20220720
  Serious: Yes (Other)
  Sender: FDA-Public Use
  Company Number: DE-SERVIER-S22003296

PATIENT
  Age: 65 Year
  Sex: Female

DRUGS (10)
  1. IVABRADINE [Suspect]
     Active Substance: IVABRADINE
     Indication: Angina pectoris
     Dosage: 7.5 MG, BID
     Route: 048
     Dates: start: 2015, end: 202203
  2. IVABRADINE [Suspect]
     Active Substance: IVABRADINE
     Indication: Heart rate increased
     Dosage: 7.5 MG, QD
     Route: 048
     Dates: start: 202203, end: 202204
  3. IVABRADINE [Suspect]
     Active Substance: IVABRADINE
     Dosage: 5 MG, BID
     Route: 065
     Dates: start: 202204, end: 202204
  4. IVABRADINE [Suspect]
     Active Substance: IVABRADINE
     Dosage: 5 MG, QD
     Route: 065
     Dates: start: 202204, end: 202204
  5. IVABRADINE [Suspect]
     Active Substance: IVABRADINE
     Dosage: 2.5 MG, BID
     Route: 065
     Dates: start: 202204, end: 202204
  6. IVABRADINE [Suspect]
     Active Substance: IVABRADINE
     Dosage: 2.5 MG, QD
     Route: 065
     Dates: start: 202204, end: 202204
  7. RAMIPRIL [Concomitant]
     Active Substance: RAMIPRIL
     Indication: Product used for unknown indication
     Dosage: 5 MG, BID
     Route: 048
  8. PREDNISOLONE [Concomitant]
     Active Substance: PREDNISOLONE
     Indication: Product used for unknown indication
     Dosage: 5 MG, QD
     Route: 065
  9. NALOXONE HYDROCHLORIDE\TILIDINE HYDROCHLORIDE [Concomitant]
     Active Substance: NALOXONE HYDROCHLORIDE\TILIDINE HYDROCHLORIDE
     Indication: Product used for unknown indication
     Dosage: 1 DF, BID
     Route: 048
  10. TORSEMIDE [Concomitant]
     Active Substance: TORSEMIDE
     Indication: Product used for unknown indication
     Dosage: 5 MG, QD
     Route: 065

REACTIONS (5)
  - Dyspnoea [Unknown]
  - Bradycardia [Recovered/Resolved]
  - Fatigue [Unknown]
  - Myocarditis [Recovered/Resolved]
  - Product use issue [Recovered/Resolved]

NARRATIVE: CASE EVENT DATE: 20211129
